FAERS Safety Report 9301601 (Version 1)
Quarter: 2013Q2

REPORT INFORMATION
  Report Type: Spontaneous
  Country: FR (occurrence: FR)
  Receive Date: 20130521
  Receipt Date: 20130521
  Transmission Date: 20140414
  Serious: Yes (Hospitalization, Other)
  Sender: FDA-Public Use
  Company Number: FR-BRISTOL-MYERS SQUIBB COMPANY-18905026

PATIENT
  Age: 85 Year
  Sex: Female

DRUGS (10)
  1. COUMADINE [Suspect]
     Indication: ATRIAL FIBRILLATION
     Dosage: DRUG INTERRUPTED ON: 16DEC12?REINTRODUCED ON 22DEC12
     Route: 048
     Dates: start: 2011
  2. TAVANIC [Interacting]
     Indication: LUNG DISORDER
     Route: 048
     Dates: start: 20121207, end: 20121220
  3. ELISOR [Concomitant]
     Indication: HYPERCHOLESTEROLAEMIA
     Route: 048
  4. INEXIUM [Concomitant]
     Route: 048
  5. NOVONORM [Concomitant]
     Indication: TYPE 2 DIABETES MELLITUS
     Route: 048
  6. CORDARONE [Concomitant]
     Indication: ATRIAL FIBRILLATION
     Route: 048
  7. LERCAN [Concomitant]
     Indication: HYPERTENSION
     Route: 048
  8. LASILIX [Concomitant]
     Indication: MITRAL VALVE INCOMPETENCE
     Route: 048
  9. LANTUS [Concomitant]
     Indication: TYPE 2 DIABETES MELLITUS
     Route: 058
  10. KALEORID [Concomitant]
     Indication: HYPOKALAEMIA
     Route: 048

REACTIONS (6)
  - Cardiac failure [Recovered/Resolved]
  - Lung disorder [Recovered/Resolved]
  - Confusional state [Recovered/Resolved]
  - Renal failure acute [Recovered/Resolved]
  - International normalised ratio increased [Recovered/Resolved]
  - Drug interaction [Unknown]
